FAERS Safety Report 13600446 (Version 1)
Quarter: 2017Q2

REPORT INFORMATION
  Report Type: Spontaneous
  Country: US (occurrence: US)
  Receive Date: 20170531
  Receipt Date: 20170531
  Transmission Date: 20170830
  Serious: Yes (Other)
  Sender: FDA-Public Use
  Company Number: None

PATIENT
  Age: 63 Year
  Sex: Female
  Weight: 54 kg

DRUGS (14)
  1. DULERA [Concomitant]
     Active Substance: FORMOTEROL FUMARATE DIHYDRATE\MOMETASONE FUROATE
  2. METHYLCARBMAOL [Concomitant]
  3. WELLBUTRIN XL [Concomitant]
     Active Substance: BUPROPION HYDROCHLORIDE
  4. XOPENEX [Concomitant]
     Active Substance: LEVALBUTEROL HYDROCHLORIDE
  5. LEVOTHYROXINE. [Concomitant]
     Active Substance: LEVOTHYROXINE
  6. NYSTATIN. [Concomitant]
     Active Substance: NYSTATIN
  7. TRADAZONE [Concomitant]
  8. XANAX [Concomitant]
     Active Substance: ALPRAZOLAM
  9. QNASL [Suspect]
     Active Substance: BECLOMETHASONE DIPROPIONATE
     Indication: RHINITIS ALLERGIC
     Route: 045
     Dates: start: 20151007, end: 20170508
  10. VENTOLIN [Concomitant]
     Active Substance: ALBUTEROL SULFATE
  11. GABAPENTIN. [Concomitant]
     Active Substance: GABAPENTIN
  12. ATENOLOL. [Concomitant]
     Active Substance: ATENOLOL
  13. ZOLOFT [Concomitant]
     Active Substance: SERTRALINE HYDROCHLORIDE
  14. VITAMIN D3 [Concomitant]
     Active Substance: CHOLECALCIFEROL

REACTIONS (7)
  - Dyspnoea [None]
  - Sputum increased [None]
  - Diarrhoea [None]
  - Fatigue [None]
  - Nasal congestion [None]
  - Rhinorrhoea [None]
  - Pruritus [None]

NARRATIVE: CASE EVENT DATE: 20170530
